FAERS Safety Report 7581410-0 (Version None)
Quarter: 2011Q2

REPORT INFORMATION
  Report Type: 
  Country: None (occurrence: None)
  Receive Date: 20110629
  Receipt Date: 20110616
  Transmission Date: 20111010
  Serious: Yes (Hospitalization, Other)
  Sender: FDA-Public Use
  Company Number: PHHY2011BR53714

PATIENT
  Sex: Female
  Weight: 54 kg

DRUGS (6)
  1. FORMOTEROL FUMARATE [Suspect]
     Indication: PULMONARY FIBROSIS
     Dosage: 1 DF, BID
  2. FORMOTEROL FUMARATE [Suspect]
     Indication: DYSPNOEA
  3. DEFLAZACORT [Concomitant]
     Indication: PULMONARY FIBROSIS
  4. FLUIMUCIL [Concomitant]
     Dosage: DILUTED IN WATER IN THE MORNING
     Route: 048
  5. DEFLAZACORT [Concomitant]
     Indication: DYSPNOEA
  6. DICLOFENAC SODIUM [Concomitant]
     Dosage: 1 DF, Q8H
     Route: 048

REACTIONS (6)
  - EATING DISORDER [None]
  - UPPER LIMB FRACTURE [None]
  - FALL [None]
  - DYSPNOEA [None]
  - HAND FRACTURE [None]
  - WEIGHT DECREASED [None]
